FAERS Safety Report 8394712-5 (Version None)
Quarter: 2012Q2

REPORT INFORMATION
  Report Type: 
  Country: None (occurrence: None)
  Receive Date: 20120530
  Receipt Date: 20120517
  Transmission Date: 20120825
  Serious: Yes (Other)
  Sender: FDA-Public Use
  Company Number: US-PFIZER INC-2012114723

PATIENT
  Sex: Female
  Weight: 61.2 kg

DRUGS (6)
  1. PRISTIQ [Interacting]
     Dosage: 50 MG, DAILY
     Dates: start: 20120101
  2. PRISTIQ [Suspect]
     Indication: DEPRESSION
     Dosage: 50 MG, 1X/DAY
     Route: 048
     Dates: start: 20120105
  3. NIASPAN [Concomitant]
     Indication: BLOOD CHOLESTEROL INCREASED
     Dosage: 500 MG, 1X/DAY
  4. COUMADIN [Interacting]
     Indication: CARDIAC PROCEDURE COMPLICATION
     Dosage: 5 MG, 1X/DAY
     Route: 048
     Dates: start: 20001101
  5. COUMADIN [Interacting]
     Indication: CORONARY ARTERY DISEASE
     Dosage: UNK
  6. PRAVASTATIN [Concomitant]
     Indication: BLOOD CHOLESTEROL INCREASED
     Dosage: 40 MG, DAILY

REACTIONS (4)
  - BLOOD DISORDER [None]
  - THYROID DISORDER [None]
  - DRUG INTERACTION [None]
  - INTERNATIONAL NORMALISED RATIO ABNORMAL [None]
